FAERS Safety Report 14334398 (Version 3)
Quarter: 2018Q1

REPORT INFORMATION
  Report Type: Spontaneous
  Country: US (occurrence: US)
  Receive Date: 20171228
  Receipt Date: 20180223
  Transmission Date: 20180509
  Serious: Yes (Other)
  Sender: FDA-Public Use
  Company Number: US-009507513-1712USA001525

PATIENT
  Age: 58 Year
  Sex: Female
  Weight: 84.35 kg

DRUGS (5)
  1. LISINOPRIL (+) HYDROCHLOROTHIAZIDE [Concomitant]
     Active Substance: HYDROCHLOROTHIAZIDE\LISINOPRIL
     Indication: HYPERTENSION
     Dosage: 1 TABLET (20-12.5 MG) DAILY
     Route: 048
  2. ALOGLIPTIN BENZOATE (+) METFORMIN HYDROCHLORIDE [Concomitant]
     Indication: DIABETES MELLITUS
     Dosage: 2 TABLETS (DOSE ALSO REPORTED AS 12.5/1000 (UNITS NOT PROVIDED)) DAILY
     Route: 048
  3. ZEPATIER [Suspect]
     Active Substance: ELBASVIR\GRAZOPREVIR
     Indication: CHRONIC HEPATITIS C
     Dosage: 1 TABLET DAILY
     Route: 048
     Dates: start: 20171109
  4. BANOPHEN ALLERGY [Concomitant]
     Indication: HYPERSENSITIVITY
     Dosage: 1 TABLET (25 MG) DAILY
     Route: 048
  5. TIZANIDINE HYDROCHLORIDE. [Concomitant]
     Active Substance: TIZANIDINE HYDROCHLORIDE
     Indication: OSTEOARTHRITIS
     Dosage: 1 DF (4 MG), AS NEEDED
     Route: 048

REACTIONS (4)
  - Weight decreased [Recovered/Resolved]
  - Decreased appetite [Recovered/Resolved]
  - Nausea [Recovered/Resolved]
  - Vomiting [Recovered/Resolved]

NARRATIVE: CASE EVENT DATE: 20171110
